FAERS Safety Report 9462088 (Version 1)
Quarter: 2013Q3

REPORT INFORMATION
  Report Type: Spontaneous
  Country: US (occurrence: None)
  Receive Date: 20130813
  Receipt Date: 20130813
  Transmission Date: 20140515
  Serious: Yes (Other)
  Sender: FDA-Public Use
  Company Number: FK201303077

PATIENT
  Sex: Female
  Weight: 79.5 kg

DRUGS (5)
  1. AMIODARONE HCL [Suspect]
     Indication: PRODUCT USED FOR UNKNOWN INDICATION
  2. DABIGATRAN [Suspect]
     Indication: ATRIAL FIBRILLATION
  3. FUROSEMIDE (FUROSEMIDE) [Concomitant]
  4. CARVEDILOL (CARVEDILOL) [Concomitant]
  5. SIMVASTATIN (SIMVASTATIN) [Concomitant]

REACTIONS (11)
  - Renal failure acute [None]
  - Drug interaction [None]
  - Gastroenteritis [None]
  - Thrombocytopenia [None]
  - Red blood cell schistocytes present [None]
  - International normalised ratio increased [None]
  - Coagulopathy [None]
  - Dehydration [None]
  - Drug clearance decreased [None]
  - Thrombin time prolonged [None]
  - Drug level increased [None]
